FAERS Safety Report 7700223-X (Version None)
Quarter: 2011Q3

REPORT INFORMATION
  Report Type: 
  Country: None (occurrence: None)
  Receive Date: 20110822
  Receipt Date: 20110809
  Transmission Date: 20111222
  Serious: Yes (Hospitalization)
  Sender: FDA-Public Use
  Company Number: US-BAYER-2011-020740

PATIENT
  Age: 61 Year
  Sex: Male
  Weight: 81.179 kg

DRUGS (8)
  1. LEUKINE [Suspect]
     Indication: NEUTROPENIA
     Dosage: 500 ?G X 7DAYS
     Dates: start: 20101001, end: 20101201
  2. METOPROLOL TARTRATE [Concomitant]
  3. AMIODARONE HCL [Concomitant]
  4. ACETAMINOPHEN AND HYDROCODONE BITARTRATE [Concomitant]
  5. ALPRAZOLAM [Concomitant]
  6. SIMVASTATIN [Concomitant]
  7. WARFARIN SODIUM [Concomitant]
  8. VIAGRA [Concomitant]

REACTIONS (3)
  - OEDEMA PERIPHERAL [None]
  - NAUSEA [None]
  - BONE PAIN [None]
